FAERS Safety Report 7902890-4 (Version None)
Quarter: 2011Q4

REPORT INFORMATION
  Report Type: 
  Country: None (occurrence: None)
  Receive Date: 20111109
  Receipt Date: 20111006
  Transmission Date: 20120403
  Serious: Yes (Disabling)
  Sender: FDA-Public Use
  Company Number: CA-JNJFOC-20111102133

PATIENT
  Sex: Female
  Weight: 56 kg

DRUGS (5)
  1. NEXIUM [Concomitant]
     Route: 065
  2. CELEBREX [Concomitant]
     Route: 065
  3. REMICADE [Suspect]
     Indication: ANKYLOSING SPONDYLITIS
     Route: 042
     Dates: start: 20111019
  4. ALL OTHER THERAPEUTICS [Concomitant]
     Route: 065
  5. REMICADE [Suspect]
     Route: 042
     Dates: start: 20090408, end: 20110907

REACTIONS (1)
  - CARPAL TUNNEL DECOMPRESSION [None]
